FAERS Safety Report 13731473 (Version 1)
Quarter: 2017Q3

REPORT INFORMATION
  Report Type: Spontaneous
  Country: US (occurrence: US)
  Receive Date: 20170707
  Receipt Date: 20170707
  Transmission Date: 20171127
  Serious: Yes (Other)
  Sender: FDA-Public Use
  Company Number: US-SA-2017SA122765

PATIENT
  Age: 43 Year
  Sex: Female

DRUGS (1)
  1. AUBAGIO [Suspect]
     Active Substance: TERIFLUNOMIDE
     Indication: MULTIPLE SCLEROSIS
     Route: 048
     Dates: start: 20160803, end: 20170620

REACTIONS (4)
  - Carpal tunnel syndrome [Unknown]
  - Type 2 diabetes mellitus [Unknown]
  - Hepatic enzyme increased [Unknown]
  - Hypertension [Unknown]

NARRATIVE: CASE EVENT DATE: 20170523
